FAERS Safety Report 7626737-9 (Version None)
Quarter: 2011Q3

REPORT INFORMATION
  Report Type: 
  Country: None (occurrence: None)
  Receive Date: 20110721
  Receipt Date: 20110627
  Transmission Date: 20111222
  Serious: Yes (Hospitalization, Other)
  Sender: FDA-Public Use
  Company Number: BR-SANOFI-AVENTIS-2011SA041097

PATIENT
  Sex: Male

DRUGS (5)
  1. LANTUS [Suspect]
     Route: 058
     Dates: end: 20110101
  2. LANTUS [Suspect]
     Indication: TYPE 2 DIABETES MELLITUS
     Route: 058
     Dates: start: 20110101
  3. VICTOZA [Concomitant]
     Indication: TYPE 2 DIABETES MELLITUS
     Dates: start: 20110101
  4. HUMULIN R [Concomitant]
     Indication: TYPE 2 DIABETES MELLITUS
  5. INSULIN PEN NOS [Concomitant]

REACTIONS (4)
  - BLOOD GLUCOSE INCREASED [None]
  - CEREBRAL INFARCTION [None]
  - PRODUCT QUALITY ISSUE [None]
  - CORONARY ARTERY DISEASE [None]
